FAERS Safety Report 21892610 (Version 1)
Quarter: 2023Q1

REPORT INFORMATION
  Report Type: Spontaneous
  Country: US (occurrence: US)
  Receive Date: 20230120
  Receipt Date: 20230120
  Transmission Date: 20230418
  Serious: No
  Sender: FDA-Public Use
  Company Number: ENDG22-01897

PATIENT
  Age: 55 Year
  Sex: Male

DRUGS (1)
  1. PERCOCET [Suspect]
     Active Substance: ACETAMINOPHEN\OXYCODONE HYDROCHLORIDE
     Indication: Pain
     Dosage: UNK UNKNOWN, UNKNOWN
     Route: 048

REACTIONS (4)
  - Euphoric mood [Unknown]
  - Counterfeit product administered [Unknown]
  - Prescription drug used without a prescription [Unknown]
  - Product counterfeit [Unknown]

NARRATIVE: CASE EVENT DATE: 20220316
